FAERS Safety Report 24181885 (Version 1)
Quarter: 2024Q3

REPORT INFORMATION
  Report Type: Spontaneous
  Country: IT (occurrence: IT)
  Receive Date: 20240807
  Receipt Date: 20240807
  Transmission Date: 20241016
  Serious: Yes (Other)
  Sender: ALKEM
  Company Number: IT-ALKEM LABORATORIES LIMITED-IT-ALKEM-2024-15693

PATIENT
  Age: 25 Year
  Sex: Male

DRUGS (2)
  1. MESALAMINE [Suspect]
     Active Substance: MESALAMINE
     Indication: Ileal ulcer
     Dosage: 400 MILLIGRAM (BIS IN DIE)
     Route: 065
  2. IBUPROFEN [Concomitant]
     Active Substance: IBUPROFEN
     Indication: Inflammation
     Dosage: UNK
     Route: 065

REACTIONS (2)
  - Myocarditis [Recovered/Resolved]
  - Disease recurrence [Recovered/Resolved]
